FAERS Safety Report 9091354 (Version 1)
Quarter: 2013Q1

REPORT INFORMATION
  Report Type: Report from Study
  Country: US (occurrence: US)
  Receive Date: 20130201
  Receipt Date: 20130201
  Transmission Date: 20140127
  Serious: No
  Sender: FDA-Public Use
  Company Number: US-ABBOTT-12P-163-1023003-00

PATIENT
  Age: 37 Year
  Sex: Female

DRUGS (12)
  1. HUMIRA [Suspect]
     Indication: ANKYLOSING SPONDYLITIS
     Route: 058
     Dates: start: 20121130
  2. PENTASA [Concomitant]
     Indication: CROHN^S DISEASE
  3. TRIMETHOPRIM [Concomitant]
     Indication: CYSTITIS INTERSTITIAL
  4. METHOTREXATE [Concomitant]
     Indication: ARTHRITIS
     Dosage: EVERY SATURDAY
  5. FOLIC ACID [Concomitant]
     Indication: PRODUCT USED FOR UNKNOWN INDICATION
  6. NEURONTIN [Concomitant]
     Indication: FIBROMYALGIA
  7. ELMIRON [Concomitant]
     Indication: CYSTITIS INTERSTITIAL
  8. CYMBALTA [Concomitant]
     Indication: FIBROMYALGIA
  9. HYDROCODONE [Concomitant]
     Indication: PAIN
     Dosage: 5/325; AS NEEDED
  10. ZANAFLEX [Concomitant]
     Indication: BREAKTHROUGH PAIN
     Dosage: EVERY NIGHT AT BEDTIME
  11. ZANAFLEX [Concomitant]
     Indication: MUSCLE SPASMS
  12. VALIUM [Concomitant]
     Indication: NEURALGIA

REACTIONS (1)
  - Dizziness [Recovered/Resolved]
